FAERS Safety Report 9123599 (Version 3)
Quarter: 2013Q4

REPORT INFORMATION
  Report Type: Spontaneous
  Country: US (occurrence: US)
  Receive Date: 20130227
  Receipt Date: 20131018
  Transmission Date: 20140711
  Serious: Yes (Hospitalization)
  Sender: FDA-Public Use
  Company Number: US-BAYER-2013-023475

PATIENT
  Age: 41 Year
  Sex: Female
  Weight: 95.24 kg

DRUGS (13)
  1. YAZ [Suspect]
     Indication: PREMENSTRUAL SYNDROME
     Dosage: UNK
     Dates: start: 2006, end: 20120609
  2. YAZ [Suspect]
     Indication: MENSTRUAL CYCLE MANAGEMENT
     Dosage: UNK
     Dates: start: 20100201, end: 20120609
  3. YASMIN [Suspect]
     Indication: PREMENSTRUAL SYNDROME
     Dosage: UNK
     Dates: start: 20070527, end: 20070627
  4. GIANVI [Suspect]
     Dosage: UNK
     Dates: start: 201106, end: 201109
  5. SUMATRIPTAN SUCCINATE [Concomitant]
     Dosage: UNK
     Dates: start: 20120304, end: 20120524
  6. PREDNISONE [Concomitant]
     Dosage: UNK
     Dates: start: 20120413
  7. ADVAIR DISKUS [Concomitant]
     Dosage: UNK
     Dates: start: 20120413
  8. CEFDINIR [Concomitant]
     Dosage: UNK
     Dates: start: 20120413
  9. SINGULAIR [Concomitant]
     Dosage: UNK
     Dates: start: 20120502
  10. ZYRTEC [Concomitant]
     Indication: MULTIPLE ALLERGIES
     Dosage: 10 MG, QD
     Dates: start: 2002
  11. PRILOSEC [Concomitant]
     Indication: GASTROOESOPHAGEAL REFLUX DISEASE
     Dosage: 20 MG, QD
     Dates: start: 2011
  12. PROVENTIL [Concomitant]
  13. IMITREX [Concomitant]

REACTIONS (5)
  - Cerebrovascular accident [Not Recovered/Not Resolved]
  - Fear of disease [None]
  - Pain [None]
  - Injury [Not Recovered/Not Resolved]
  - Pain [Not Recovered/Not Resolved]
